FAERS Safety Report 21591555 (Version 3)
Quarter: 2022Q4

REPORT INFORMATION
  Report Type: Report from Study
  Country: US (occurrence: US)
  Receive Date: 20221114
  Receipt Date: 20221215
  Transmission Date: 20230113
  Serious: Yes (Hospitalization)
  Sender: FDA-Public Use
  Company Number: US-JNJFOC-20221115164

PATIENT
  Age: 36 Year
  Sex: Female
  Weight: 122.7 kg

DRUGS (4)
  1. EPOPROSTENOL SODIUM [Suspect]
     Active Substance: EPOPROSTENOL SODIUM
     Indication: Pulmonary hypertension
     Route: 042
  2. MACITENTAN [Suspect]
     Active Substance: MACITENTAN
     Indication: Product used for unknown indication
     Route: 048
  3. ELIQUIS [Concomitant]
     Active Substance: APIXABAN
     Indication: Product used for unknown indication
  4. TADALAFIL [Concomitant]
     Active Substance: TADALAFIL

REACTIONS (7)
  - Appendicitis [Unknown]
  - Upper respiratory tract infection [Unknown]
  - Device occlusion [Unknown]
  - Product dose omission issue [Unknown]
  - Influenza [Unknown]
  - Chest pain [Unknown]
  - Underdose [Unknown]

NARRATIVE: CASE EVENT DATE: 20221024
